FAERS Safety Report 6056728-3 (Version None)
Quarter: 2009Q1

REPORT INFORMATION
  Report Type: 
  Country: None (occurrence: None)
  Receive Date: 20090129
  Receipt Date: 20090123
  Transmission Date: 20090719
  Serious: Yes (Hospitalization)
  Sender: FDA-Public Use
  Company Number: US-BIOGENIDEC-2008BI032292

PATIENT
  Age: 44 Year
  Sex: Female

DRUGS (3)
  1. AVONEX [Suspect]
     Indication: MULTIPLE SCLEROSIS
     Route: 030
     Dates: start: 20080701
  2. AVONEX [Suspect]
     Route: 030
     Dates: start: 20000101
  3. AVONEX [Suspect]
     Route: 030
     Dates: end: 20080401

REACTIONS (1)
  - INGUINAL HERNIA [None]
